FAERS Safety Report 20827083 (Version 1)
Quarter: 2022Q2

REPORT INFORMATION
  Report Type: Spontaneous
  Country: RO (occurrence: RO)
  Receive Date: 20220513
  Receipt Date: 20220513
  Transmission Date: 20220721
  Serious: No
  Sender: FDA-Public Use
  Company Number: RO-LUPIN PHARMACEUTICALS INC.-2022-06779

PATIENT
  Age: 63 Year
  Sex: Female

DRUGS (31)
  1. QUETIAPINE [Suspect]
     Active Substance: QUETIAPINE
     Indication: Delusion of parasitosis
     Dosage: 50 MG, QD (DAILY IN THE EVENING)
     Route: 065
  2. QUETIAPINE [Suspect]
     Active Substance: QUETIAPINE
     Dosage: 150 MG, QD (DAILY IN THE EVENING)
     Route: 065
  3. DULOXETINE [Suspect]
     Active Substance: DULOXETINE
     Indication: Delusion of parasitosis
     Dosage: 30 MG, QD
     Route: 065
  4. METHYLPREDNISOLONE [Suspect]
     Active Substance: METHYLPREDNISOLONE
     Indication: Facial paralysis
     Dosage: UNK
     Route: 065
  5. HYDROCORTISONE [Suspect]
     Active Substance: HYDROCORTISONE
     Indication: Diabetic dermopathy
     Dosage: UNK
     Route: 065
  6. HYDROCORTISONE [Suspect]
     Active Substance: HYDROCORTISONE
     Indication: Parapsoriasis
  7. RISPERIDONE [Suspect]
     Active Substance: RISPERIDONE
     Indication: Delusion of parasitosis
     Dosage: 3 MG, QD (DAILY IN THE EVENING)
     Route: 065
  8. SERTRALINE [Concomitant]
     Active Substance: SERTRALINE HYDROCHLORIDE
     Indication: Depression
     Dosage: UNK
     Route: 065
  9. SERTRALINE [Concomitant]
     Active Substance: SERTRALINE HYDROCHLORIDE
     Indication: Somatic symptom disorder
  10. RAMIPRIL [Concomitant]
     Active Substance: RAMIPRIL
     Indication: Hypertension
     Dosage: UNK
     Route: 065
  11. LEVOCETIRIZINE [Concomitant]
     Active Substance: LEVOCETIRIZINE
     Indication: Diabetic dermopathy
     Dosage: UNK
     Route: 065
  12. LEVOCETIRIZINE [Concomitant]
     Active Substance: LEVOCETIRIZINE
     Indication: Parapsoriasis
  13. INSULIN NOS [Concomitant]
     Active Substance: INSULIN NOS
     Indication: Type 2 diabetes mellitus
     Dosage: UNK
     Route: 058
  14. BUSPIRONE [Concomitant]
     Active Substance: BUSPIRONE HYDROCHLORIDE
     Indication: Depression
     Dosage: UNK
     Route: 065
  15. BUSPIRONE [Concomitant]
     Active Substance: BUSPIRONE HYDROCHLORIDE
     Indication: Somatic symptom disorder
  16. ALPRAZOLAM [Concomitant]
     Active Substance: ALPRAZOLAM
     Indication: Depression
     Dosage: UNK
     Route: 065
  17. ALPRAZOLAM [Concomitant]
     Active Substance: ALPRAZOLAM
     Indication: Somatic symptom disorder
  18. INDAPAMIDE [Concomitant]
     Active Substance: INDAPAMIDE
     Indication: Hypertension
     Dosage: UNK
     Route: 065
  19. SULODEXIDE [Concomitant]
     Active Substance: SULODEXIDE
     Indication: Peripheral venous disease
     Dosage: UNK (600 LSU)
     Route: 065
  20. OMEPRAZOLE [Concomitant]
     Active Substance: OMEPRAZOLE
     Indication: Peripheral venous disease
     Dosage: UNK
     Route: 065
  21. IBANDRONIC ACID [Concomitant]
     Active Substance: IBANDRONIC ACID
     Indication: Osteoporosis
     Dosage: UNK
     Route: 065
  22. RUPATADINE [Concomitant]
     Active Substance: RUPATADINE
     Indication: Diabetic dermopathy
     Dosage: UNK
     Route: 065
  23. RUPATADINE [Concomitant]
     Active Substance: RUPATADINE
     Indication: Parapsoriasis
  24. BENFOTIAMINE [Concomitant]
     Active Substance: BENFOTIAMINE
     Indication: Facial paralysis
     Dosage: UNK
     Route: 065
  25. VITAMIN B6 [Concomitant]
     Active Substance: PYRIDOXINE HYDROCHLORIDE
     Indication: Facial paralysis
     Dosage: UNK
     Route: 065
  26. VITAMIN B6 [Concomitant]
     Active Substance: PYRIDOXINE HYDROCHLORIDE
     Indication: Vitamin supplementation
  27. VITAMIN B12 [Concomitant]
     Active Substance: CYANOCOBALAMIN
     Indication: Facial paralysis
     Dosage: UNK
     Route: 065
  28. VITAMIN B12 [Concomitant]
     Active Substance: CYANOCOBALAMIN
     Indication: Vitamin supplementation
  29. SPIRONOLACTONE [Concomitant]
     Active Substance: SPIRONOLACTONE
     Indication: Facial paralysis
     Dosage: UNK
     Route: 065
  30. MICONAZOLE [Concomitant]
     Active Substance: MICONAZOLE
     Indication: Parapsoriasis
     Dosage: UNK
     Route: 065
  31. FUSIDIC ACID [Concomitant]
     Active Substance: FUSIDIC ACID
     Indication: Parapsoriasis
     Dosage: UNK
     Route: 065

REACTIONS (5)
  - Dizziness [Unknown]
  - Head discomfort [Unknown]
  - Somnolence [Unknown]
  - Hypotension [Unknown]
  - Off label use [Unknown]
